FAERS Safety Report 4468343-3 (Version None)
Quarter: 2004Q4

REPORT INFORMATION
  Report Type: 
  Country: None (occurrence: None)
  Receive Date: 20041007
  Receipt Date: 20041001
  Transmission Date: 20050328
  Serious: Yes (Death)
  Sender: FDA-Public Use
  Company Number: PHBS2004US13168

PATIENT
  Age: 43 Year
  Sex: Male

DRUGS (8)
  1. METOPROLOL [Suspect]
     Route: 042
  2. NITROGLYCERIN [Concomitant]
  3. ASPIRIN [Concomitant]
  4. LORAZEPAM [Concomitant]
     Dosage: 1 MG/DAY
     Route: 042
  5. MAGNESIUM SULFATE [Concomitant]
     Route: 042
  6. HEPARIN [Concomitant]
  7. PHENYTOIN [Concomitant]
  8. GUAIFENESIN [Concomitant]

REACTIONS (14)
  - APNOEA [None]
  - BLOOD PRESSURE DECREASED [None]
  - CARDIAC FAILURE [None]
  - CONGESTIVE CARDIOMYOPATHY [None]
  - CONVULSION [None]
  - DRUG TOXICITY [None]
  - HEART RATE DECREASED [None]
  - NODAL RHYTHM [None]
  - PULMONARY CONGESTION [None]
  - PULMONARY HILUM MASS [None]
  - PULSE ABSENT [None]
  - TACHYARRHYTHMIA [None]
  - VENTRICULAR FIBRILLATION [None]
  - VENTRICULAR TACHYCARDIA [None]
